FAERS Safety Report 18716330 (Version 1)
Quarter: 2021Q1

REPORT INFORMATION
  Report Type: Spontaneous
  Country: US (occurrence: US)
  Receive Date: 20210107
  Receipt Date: 20210107
  Transmission Date: 20210419
  Serious: Yes (Hospitalization)
  Sender: FDA-Public Use
  Company Number: None

PATIENT
  Age: 71 Year
  Sex: Male
  Weight: 62.1 kg

DRUGS (13)
  1. ASA [Concomitant]
     Active Substance: ASPIRIN
  2. FUROSEMIDE. [Concomitant]
     Active Substance: FUROSEMIDE
  3. IRON INFUSIONS [Concomitant]
     Active Substance: IRON
  4. JARDIANCE [Suspect]
     Active Substance: EMPAGLIFLOZIN
     Indication: DIABETES MELLITUS
     Dosage: ?          QUANTITY:1 TABLET(S);?
     Route: 048
     Dates: start: 20200924, end: 20201021
  5. ATROVASTAIN [Concomitant]
  6. TAMSULOSIN [Concomitant]
     Active Substance: TAMSULOSIN
  7. PREDNISONE. [Concomitant]
     Active Substance: PREDNISONE
  8. PANTAPROZOLE [Concomitant]
     Active Substance: PANTOPRAZOLE SODIUM
  9. FINASTERIDE. [Concomitant]
     Active Substance: FINASTERIDE
  10. METOPROLOL XL [Concomitant]
     Active Substance: METOPROLOL SUCCINATE
  11. METFORMIN [Concomitant]
     Active Substance: METFORMIN HYDROCHLORIDE
  12. RYBELUS [Concomitant]
  13. GLUCERNA [Concomitant]
     Active Substance: AMINO ACIDS\DEXTROSE\ELECTROLYTES NOS\SOYBEAN OIL\VITAMINS

REACTIONS (1)
  - Blood urine present [None]

NARRATIVE: CASE EVENT DATE: 20201020
